FAERS Safety Report 9625874 (Version 2)
Quarter: 2013Q4

REPORT INFORMATION
  Report Type: Spontaneous
  Country: US (occurrence: US)
  Receive Date: 20131016
  Receipt Date: 20131016
  Transmission Date: 20140711
  Serious: Yes (Hospitalization)
  Sender: FDA-Public Use
  Company Number: US-BAXTER-2013BAX016953

PATIENT
  Age: 31 Year
  Sex: Male

DRUGS (5)
  1. DIANEAL LOW CALCIUM (ULTRABAG) [Suspect]
     Indication: PERITONEAL DIALYSIS
     Route: 033
     Dates: start: 20120927
  2. ONDANSETRON [Concomitant]
     Indication: GASTRITIS
     Route: 048
  3. ONDANSETRON [Concomitant]
     Indication: IMPAIRED GASTRIC EMPTYING
  4. PANTOPRAZOLE [Concomitant]
     Indication: GASTRITIS
     Route: 048
  5. PANTOPRAZOLE [Concomitant]
     Indication: IMPAIRED GASTRIC EMPTYING

REACTIONS (3)
  - Nausea [Recovering/Resolving]
  - Vomiting [Recovering/Resolving]
  - Diarrhoea [Recovering/Resolving]
